FAERS Safety Report 8707290 (Version 2)
Quarter: 2012Q4

REPORT INFORMATION
  Report Type: 
  Country: US (occurrence: US)
  Receive Date: 20120803
  Receipt Date: 20120924
  Transmission Date: 20130627
  Serious: Yes (Hospitalization, Other)
  Sender: FDA-Public Use
  Company Number: US-ELI_LILLY_AND_COMPANY-US201207006894

PATIENT
  Age: 58 Year
  Sex: Female
  Weight: 94.33 kg

DRUGS (7)
  1. BYDUREON [Suspect]
     Indication: TYPE 2 DIABETES MELLITUS
     Dosage: 2 mg, weekly (1/W)
     Route: 058
     Dates: start: 20120704, end: 20120718
  2. METFORMIN [Concomitant]
     Indication: TYPE 2 DIABETES MELLITUS
     Dosage: 1000 mg, bid
     Route: 048
  3. GLIPIZIDE XL [Concomitant]
     Indication: TYPE 2 DIABETES MELLITUS
     Dosage: 5 mg, bid
     Route: 048
  4. MIRAPEX [Concomitant]
     Indication: RESTLESS LEGS SYNDROME
     Dosage: 0.5 mg, bid
     Route: 048
  5. GABAPENTIN [Concomitant]
     Indication: DIABETIC NEUROPATHY
     Dosage: 1200 mg, UNK
     Route: 048
  6. CARBIDOPA/LEVODOPA [Concomitant]
     Indication: PARKINSON^S DISEASE
     Dosage: 1 DF, bid
  7. MECLIZINE [Concomitant]
     Dosage: 25 mg, tid

REACTIONS (13)
  - Chest pain [Recovered/Resolved]
  - Petit mal epilepsy [Not Recovered/Not Resolved]
  - Tremor [Unknown]
  - Dissociation [Not Recovered/Not Resolved]
  - Cholelithiasis [Not Recovered/Not Resolved]
  - Parkinson^s disease [Unknown]
  - Dyspnoea [Unknown]
  - Presyncope [Recovering/Resolving]
  - Cold sweat [Recovering/Resolving]
  - Feeling abnormal [Not Recovered/Not Resolved]
  - Activities of daily living impaired [Unknown]
  - Nausea [Unknown]
  - Dizziness [Unknown]
